FAERS Safety Report 22227795 (Version 1)
Quarter: 2023Q2

REPORT INFORMATION
  Report Type: Spontaneous
  Country: BE (occurrence: None)
  Receive Date: 20230419
  Receipt Date: 20230419
  Transmission Date: 20230721
  Serious: Yes (Hospitalization)
  Sender: FDA-Public Use
  Company Number: 2023A084283

PATIENT
  Age: 3 Month
  Sex: Female

DRUGS (2)
  1. OMEPRAZOLE [Suspect]
     Active Substance: OMEPRAZOLE
     Indication: Gastritis
     Dosage: 2MG/ML,2.5ML/DOSE,B.I.D.
     Route: 048
  2. BETAMETHASONE VALERATE [Suspect]
     Active Substance: BETAMETHASONE VALERATE
     Route: 048

REACTIONS (3)
  - Product preparation error [Recovered/Resolved]
  - Off label use [Unknown]
  - Off label use [Unknown]
